FAERS Safety Report 17405572 (Version 3)
Quarter: 2020Q1

REPORT INFORMATION
  Report Type: Spontaneous
  Country: FR (occurrence: FR)
  Receive Date: 20200212
  Receipt Date: 20200226
  Transmission Date: 20200409
  Serious: Yes (Other)
  Sender: FDA-Public Use
  Company Number: FR-TEVA-2020-FR-1184246

PATIENT
  Sex: Male

DRUGS (2)
  1. EMTRICITABINE/TENOFOVIR DISOPROXIL TEVA 200 MG/245 MG [Suspect]
     Active Substance: EMTRICITABINE\TENOFOVIR
     Dosage: 2 DOSAGE FORMS DAILY; 200 MG/245 MG, AT 4:00 PM
     Route: 065
     Dates: start: 20200131
  2. EMTRICITABINE/TENOFOVIR DISOPROXIL TEVA 200 MG/245 MG [Suspect]
     Active Substance: EMTRICITABINE\TENOFOVIR
     Dosage: 1 DOSAGE FORMS DAILY; 200 MG/245 MG AT 4:00 PM
     Dates: start: 20200201

REACTIONS (7)
  - Vomiting [Unknown]
  - Incorrect dose administered [Unknown]
  - Hiccups [Unknown]
  - Fatigue [Unknown]
  - Nausea [Unknown]
  - Haematemesis [Unknown]
  - Product prescribing error [Unknown]

NARRATIVE: CASE EVENT DATE: 2020
